FAERS Safety Report 5323571-X (Version None)
Quarter: 2007Q2

REPORT INFORMATION
  Report Type: 
  Country: None (occurrence: None)
  Receive Date: 20070514
  Receipt Date: 20070504
  Transmission Date: 20071010
  Serious: Yes (Hospitalization, Other)
  Sender: FDA-Public Use
  Company Number: US-AMGEN-STX223213

PATIENT
  Sex: Male

DRUGS (2)
  1. ENBREL [Suspect]
     Indication: RHEUMATOID ARTHRITIS
     Route: 058
     Dates: start: 20070221
  2. METHOTREXATE [Concomitant]
     Route: 048
     Dates: start: 20010101

REACTIONS (2)
  - PYREXIA [None]
  - TRANSIENT ISCHAEMIC ATTACK [None]
